FAERS Safety Report 19086647 (Version 1)
Quarter: 2021Q2

REPORT INFORMATION
  Report Type: Spontaneous
  Country: US (occurrence: US)
  Receive Date: 20210401
  Receipt Date: 20210401
  Transmission Date: 20210717
  Serious: Yes (Hospitalization)
  Sender: FDA-Public Use
  Company Number: None

PATIENT
  Age: 51 Year
  Sex: Male

DRUGS (1)
  1. TEMOZOLOMIDE CAP 140MG [Suspect]
     Active Substance: TEMOZOLOMIDE
     Indication: BRAIN NEOPLASM MALIGNANT
     Dosage: OTHER FREQUENCY:OTHER;?TREATMENT START DATE: 12/34/2020?PRESENT
     Route: 048
     Dates: start: 2020

REACTIONS (4)
  - Muscle spasms [None]
  - Back pain [None]
  - Pain in extremity [None]
  - Pulmonary thrombosis [None]

NARRATIVE: CASE EVENT DATE: 20210308
